FAERS Safety Report 16703690 (Version 5)
Quarter: 2019Q4

REPORT INFORMATION
  Report Type: Spontaneous
  Country: US (occurrence: US)
  Receive Date: 20190814
  Receipt Date: 20191202
  Transmission Date: 20200122
  Serious: Yes (Hospitalization, Other)
  Sender: FDA-Public Use
  Company Number: US-CATALYST PHARMACEUTICALS, INC-2019CAT00314

PATIENT
  Age: 46 Year
  Sex: Female
  Weight: 81.63 kg

DRUGS (19)
  1. FOLIC ACID. [Concomitant]
     Active Substance: FOLIC ACID
     Dosage: 800 ?G, 1X/DAY
     Route: 048
  2. FIRDAPSE [Suspect]
     Active Substance: AMIFAMPRIDINE
     Indication: MYASTHENIC SYNDROME
     Dosage: 30 MG, 1X/DAY
     Route: 048
     Dates: start: 201901, end: 2019
  3. AZATHIOPRINE. [Concomitant]
     Active Substance: AZATHIOPRINE
     Dosage: 200 MG, 1X/DAY
     Route: 048
  4. DOXYCYCLINE MONOHYDRATE [Concomitant]
     Active Substance: DOXYCYCLINE
     Dosage: 100 MG, 2X/DAY
     Route: 048
  5. METRONIDAZOLE. [Concomitant]
     Active Substance: METRONIDAZOLE
     Dosage: 250 MG, 4X/DAY
     Route: 048
  6. BISMUTH SUBSALICYLATE. [Concomitant]
     Active Substance: BISMUTH SUBSALICYLATE
     Dosage: 30 ML, 4X/DAY
     Route: 048
  7. CALCIUM [Concomitant]
     Active Substance: CALCIUM
     Dosage: 1000 ?G, 1X/DAY
     Route: 048
  8. FLUTICASONE. [Concomitant]
     Active Substance: FLUTICASONE
     Dosage: 2 SPRAYS IN EACH NOSTRIL, 1X/DAY
     Route: 045
  9. POTASSIUM CHLORIDE ER [Concomitant]
     Active Substance: POTASSIUM CHLORIDE
     Dosage: 20 MEQ, 1X/DAY
     Route: 048
  10. VITAMIN D (CHOLECALCIFEROL) [Concomitant]
     Active Substance: CHOLECALCIFEROL
     Dosage: 2000 IU, 1X/DAY
     Route: 048
  11. PROTONIX [Concomitant]
     Active Substance: PANTOPRAZOLE SODIUM
     Dosage: 40 MG, 2X/DAY
     Route: 048
  12. METHOTREXATE. [Concomitant]
     Active Substance: METHOTREXATE
     Dosage: 7.5 MG, 1X/WEEK
     Route: 048
  13. FIRDAPSE [Suspect]
     Active Substance: AMIFAMPRIDINE
     Dosage: 10 MG, 3X/DAY
     Route: 048
     Dates: start: 20190202
  14. AMLODIPINE [Concomitant]
     Active Substance: AMLODIPINE BESYLATE
     Dosage: 5 MG, 1X/DAY
     Route: 048
  15. DOCUSATE [Concomitant]
     Active Substance: DOCUSATE
     Dosage: 100 MG, 2X/DAY
     Route: 048
  16. DOCUSATE [Concomitant]
     Active Substance: DOCUSATE
     Dosage: 100 MG, 1X/DAY
  17. PYRIDOSTIGMINE [Concomitant]
     Active Substance: PYRIDOSTIGMINE
     Dosage: 60 MG, 3X/DAY
     Route: 048
  18. DICLOFENAC SODIUM. [Concomitant]
     Active Substance: DICLOFENAC SODIUM
     Dosage: 2 GRAMS TO UPPER EXTREMITY AND 4 GRAMS TO LOWER EXTREMITY, UP TO 4X/DAY AS NEEDED
  19. PREVIDENT 5000 SENSITIVE [Concomitant]
     Active Substance: POTASSIUM NITRATE\SODIUM FLUORIDE

REACTIONS (9)
  - Lupus enteritis [Recovered/Resolved]
  - Clostridium difficile colitis [Recovered/Resolved]
  - Systemic inflammatory response syndrome [Recovered/Resolved]
  - Essential hypertension [Not Recovered/Not Resolved]
  - Helicobacter gastritis [Recovered/Resolved]
  - Abdominal pain upper [Recovered/Resolved]
  - Blood potassium decreased [Recovered/Resolved]
  - Seizure [Recovered/Resolved]
  - Syncope [Recovered/Resolved]

NARRATIVE: CASE EVENT DATE: 2019
